FAERS Safety Report 9886276 (Version 2)
Quarter: 2014Q2

REPORT INFORMATION
  Report Type: Spontaneous
  Country: US (occurrence: US)
  Receive Date: 20140210
  Receipt Date: 20140520
  Transmission Date: 20141212
  Serious: No
  Sender: FDA-Public Use
  Company Number: US-TEVA-461615USA

PATIENT
  Sex: Female
  Weight: 65.83 kg

DRUGS (1)
  1. PARAGARD 380A [Suspect]
     Indication: CONTRACEPTION
     Route: 015
     Dates: end: 201401

REACTIONS (3)
  - Abdominal pain lower [Recovered/Resolved]
  - Menorrhagia [Recovered/Resolved]
  - Vaginal haemorrhage [Recovered/Resolved]
